FAERS Safety Report 4435037-X (Version None)
Quarter: 2004Q3

REPORT INFORMATION
  Report Type: 
  Country: None (occurrence: None)
  Receive Date: 20040827
  Receipt Date: 20040820
  Transmission Date: 20050211
  Serious: Yes (Hospitalization)
  Sender: FDA-Public Use
  Company Number: US-AMGEN-US087344

PATIENT
  Sex: Female
  Weight: 65.4 kg

DRUGS (9)
  1. ARANESP [Suspect]
     Indication: ANAEMIA OF MALIGNANT DISEASE
     Route: 058
     Dates: start: 20031120, end: 20040702
  2. GLEEVEC [Concomitant]
     Route: 048
  3. PREVACID [Concomitant]
  4. LEVOXYL [Concomitant]
  5. LOPRESSOR [Concomitant]
  6. ZOCOR [Concomitant]
  7. LASIX [Concomitant]
  8. HYDROCODONE [Concomitant]
  9. ACYCLOVIR [Concomitant]

REACTIONS (2)
  - HERPES ZOSTER [None]
  - RENAL FAILURE [None]
